FAERS Safety Report 21159927 (Version 1)
Quarter: 2022Q3

REPORT INFORMATION
  Report Type: Spontaneous
  Country: TR (occurrence: TR)
  Receive Date: 20220802
  Receipt Date: 20220802
  Transmission Date: 20221027
  Serious: Yes (Other)
  Sender: FDA-Public Use
  Company Number: TR-NOVARTISPH-NVSC2022TR171270

PATIENT
  Age: 27 Year
  Sex: Female

DRUGS (1)
  1. RITALIN [Suspect]
     Active Substance: METHYLPHENIDATE HYDROCHLORIDE
     Indication: Attention deficit hyperactivity disorder
     Dosage: UNK
     Route: 065

REACTIONS (7)
  - Withdrawal syndrome [Unknown]
  - Quality of life decreased [Unknown]
  - Mental disorder [Unknown]
  - Cerebral disorder [Unknown]
  - Anxiety [Unknown]
  - Depression [Unknown]
  - Product supply issue [Unknown]
